FAERS Safety Report 4640808-0 (Version None)
Quarter: 2005Q2

REPORT INFORMATION
  Report Type: 
  Country: None (occurrence: None)
  Receive Date: 20050324
  Receipt Date: 20050104
  Transmission Date: 20051028
  Serious: No
  Sender: FDA-Public Use
  Company Number: 211607

PATIENT
  Age: 62 Year
  Sex: Male

DRUGS (8)
  1. AVASTIN [Suspect]
     Indication: COLON CANCER METASTATIC
     Dosage: Q3W, INTRAVENOUS
     Route: 042
     Dates: start: 20041215
  2. OXALIPLATIN(OXALIPLATIN) [Suspect]
     Indication: COLON CANCER METASTATIC
     Dosage: SINGLE
     Dates: start: 20041215, end: 20041215
  3. 5-FU (FLUOROURACIL) [Concomitant]
  4. INSULIN [Concomitant]
  5. ASPIRIN [Concomitant]
  6. QUESTRAN (CHOLESTYRAMINE RESIN) [Concomitant]
  7. BETA BLOCKER (UNK INGREDIENTS)(BETA BLOCKERS NOS) [Concomitant]
  8. HYDROCHLOROTHIAZIDE [Concomitant]

REACTIONS (1)
  - DIABETES MELLITUS [None]
